FAERS Safety Report 9141167 (Version 1)
Quarter: 2013Q1

REPORT INFORMATION
  Report Type: Spontaneous
  Country: US (occurrence: US)
  Receive Date: 20130305
  Receipt Date: 20130305
  Transmission Date: 20140127
  Serious: No
  Sender: FDA-Public Use
  Company Number: US-AMGEN-USASP2013007900

PATIENT
  Sex: Male

DRUGS (3)
  1. ENBREL [Suspect]
     Indication: PSORIASIS
     Dosage: 50 MG, QWK
     Dates: start: 20071101, end: 2008
  2. HUMIRA [Concomitant]
     Dosage: UNK
     Dates: start: 2008
  3. STELERA [Concomitant]
     Dosage: UNK FOR 6 MONTHS

REACTIONS (1)
  - Psoriasis [Not Recovered/Not Resolved]
